FAERS Safety Report 15280126 (Version 1)
Quarter: 2018Q3

REPORT INFORMATION
  Report Type: Report from Study
  Country: IL (occurrence: IL)
  Receive Date: 20180815
  Receipt Date: 20180815
  Transmission Date: 20181010
  Serious: Yes (Hospitalization)
  Sender: FDA-Public Use
  Company Number: IL-PFIZER INC-2018324010

PATIENT
  Age: 72 Year
  Sex: Male
  Weight: 74 kg

DRUGS (27)
  1. ALDACTONE [Suspect]
     Active Substance: SPIRONOLACTONE
     Indication: OEDEMA PERIPHERAL
     Dosage: 12.5 MG, UNK
     Route: 048
     Dates: start: 20170926, end: 201806
  2. CALTRATE [Concomitant]
     Active Substance: CALCIUM CARBONATE
  3. NOCTURNO [Concomitant]
     Dosage: 7.5 MG, UNK
  4. PREDNISONE. [Concomitant]
     Active Substance: PREDNISONE
     Dosage: UNK
     Dates: start: 20180416, end: 20180424
  5. PREDNISONE. [Concomitant]
     Active Substance: PREDNISONE
     Dosage: UNK
     Dates: start: 20161106, end: 20170508
  6. NEXIUM [Concomitant]
     Active Substance: ESOMEPRAZOLE MAGNESIUM
  7. PREDNISONE. [Concomitant]
     Active Substance: PREDNISONE
     Dosage: UNK
     Dates: start: 20160914, end: 20161008
  8. PREDNISONE. [Concomitant]
     Active Substance: PREDNISONE
     Dosage: UNK
     Dates: start: 201708, end: 20180417
  9. PREDNISONE. [Concomitant]
     Active Substance: PREDNISONE
     Dosage: UNK
     Dates: start: 20170509, end: 201708
  10. OXYGEN. [Concomitant]
     Active Substance: OXYGEN
     Dosage: UNK
     Dates: start: 20170913
  11. SOS [Concomitant]
  12. BLINDED THERAPY [Suspect]
     Active Substance: INVESTIGATIONAL PRODUCT
     Indication: PULMONARY ARTERIAL HYPERTENSION
     Dosage: UNK
     Dates: start: 20160419
  13. OMEPRADEX [Concomitant]
     Active Substance: OMEPRAZOLE
     Dosage: UNK
     Dates: start: 201007
  14. PREDNISONE. [Concomitant]
     Active Substance: PREDNISONE
     Dosage: UNK
     Dates: start: 20180425
  15. FUSID /00032601/ [Concomitant]
     Active Substance: FUROSEMIDE
     Dosage: UNK
  16. VITAMIDYNE D [Concomitant]
     Dosage: UNK
     Dates: start: 20151101
  17. PREDNISONE. [Concomitant]
     Active Substance: PREDNISONE
     Dosage: UNK
     Dates: start: 20161023
  18. TYVASO [Suspect]
     Active Substance: TREPROSTINIL
     Indication: PULMONARY ARTERIAL HYPERTENSION
     Dosage: 240 UG, UNK
     Route: 055
     Dates: start: 20160118
  19. TYVASO [Suspect]
     Active Substance: TREPROSTINIL
     Dosage: 72 UG, 4 TIMES A WEEK
     Route: 055
  20. TYVASO [Suspect]
     Active Substance: TREPROSTINIL
     Dosage: 288 UG, TOTAL DAILY DOSE
     Route: 055
  21. FUSID /00032601/ [Concomitant]
     Active Substance: FUROSEMIDE
     Dosage: UNK
     Dates: start: 20180116
  22. OPSUMIT [Concomitant]
     Active Substance: MACITENTAN
     Dosage: UNK
     Dates: start: 20150525
  23. ESCITALOPRAM [Concomitant]
     Active Substance: ESCITALOPRAM OXALATE
     Dosage: UNK
     Dates: start: 201501
  24. PREDNISONE. [Concomitant]
     Active Substance: PREDNISONE
     Dosage: UNK
     Dates: start: 20161030, end: 20161105
  25. PREDNISONE. [Concomitant]
     Active Substance: PREDNISONE
     Dosage: UNK
     Dates: start: 20161009, end: 20161015
  26. PREDNISONE. [Concomitant]
     Active Substance: PREDNISONE
     Dosage: UNK
     Dates: start: 20161016, end: 20161022
  27. AMBIEN [Concomitant]
     Active Substance: ZOLPIDEM TARTRATE
     Dosage: UNK
     Dates: start: 20170711

REACTIONS (9)
  - Anaemia [Recovered/Resolved]
  - Dizziness [Unknown]
  - Condition aggravated [Unknown]
  - Ascites [Unknown]
  - Blood creatinine abnormal [Unknown]
  - Condition aggravated [Recovered/Resolved]
  - Cough [Unknown]
  - Asthenia [Unknown]
  - Faeces hard [Unknown]

NARRATIVE: CASE EVENT DATE: 201806
